FAERS Safety Report 5719180-0 (Version None)
Quarter: 2008Q2

REPORT INFORMATION
  Report Type: 
  Country: None (occurrence: None)
  Receive Date: 20080428
  Receipt Date: 20080422
  Transmission Date: 20081010
  Serious: Yes (Hospitalization)
  Sender: FDA-Public Use
  Company Number: AT-BAYER-200817142GPV

PATIENT
  Age: 42 Year
  Sex: Female

DRUGS (2)
  1. MIRENA [Suspect]
     Indication: CONTRACEPTION
     Dosage: TOTAL DAILY DOSE: 20 ?G/D
     Route: 015
  2. MIRENA [Suspect]
     Dosage: TOTAL DAILY DOSE: 20 ?G/D
     Route: 015
     Dates: start: 20050601

REACTIONS (1)
  - BREAST CANCER [None]
